FAERS Safety Report 10971960 (Version 4)
Quarter: 2015Q4

REPORT INFORMATION
  Report Type: Spontaneous
  Country: US (occurrence: US)
  Receive Date: 20150331
  Receipt Date: 20151210
  Transmission Date: 20160304
  Serious: Yes (Death, Hospitalization)
  Sender: FDA-Public Use
  Company Number: US-ACTELION-A-US2015-115243

PATIENT
  Age: 74 Year
  Sex: Female

DRUGS (31)
  1. OPSUMIT [Suspect]
     Active Substance: MACITENTAN
     Indication: PULMONARY HYPERTENSION
     Dosage: 10 MG, QD
     Route: 048
     Dates: start: 20140115, end: 20151121
  2. BUMEX [Concomitant]
     Active Substance: BUMETANIDE
     Dosage: 2 MG, UNK
     Route: 048
  3. CYMBALTA [Concomitant]
     Active Substance: DULOXETINE HYDROCHLORIDE
     Dosage: 60 MG, UNK
  4. HYDROCHLOROTHIAZIDE. [Concomitant]
     Active Substance: HYDROCHLOROTHIAZIDE
     Dosage: 12.5 UNK, UNK
     Route: 048
  5. IRON [Concomitant]
     Active Substance: IRON
  6. PROTONIX [Concomitant]
     Active Substance: PANTOPRAZOLE SODIUM
     Dosage: 40 MG, BID
  7. FERROUS SULFATE [Concomitant]
     Active Substance: FERROUS SULFATE\FERROUS SULFATE, DRIED
     Dosage: 325 MG, BID
  8. ADCIRCA [Concomitant]
     Active Substance: TADALAFIL
  9. ALBUTEROL. [Concomitant]
     Active Substance: ALBUTEROL
     Dosage: 2.5 MG PER 3 ML, Q4H PRN
  10. COREG [Concomitant]
     Active Substance: CARVEDILOL
     Dosage: 6.25 UNK, UNK
     Route: 048
  11. OXYGEN. [Concomitant]
     Active Substance: OXYGEN
  12. APIDRA [Concomitant]
     Active Substance: INSULIN GLULISINE
     Dosage: 20 U, QD
  13. PERCOCET [Concomitant]
     Active Substance: ACETAMINOPHEN\OXYCODONE HYDROCHLORIDE
     Dosage: 5/325 MG, 1 TO 2 TABLETS Q6H PRN
  14. PENICILLIN [Concomitant]
     Active Substance: PENICILLIN
  15. LACTULOSE. [Concomitant]
     Active Substance: LACTULOSE
  16. LOSARTAN. [Concomitant]
     Active Substance: LOSARTAN
     Dosage: 25 MG, QD
  17. PRAVASTATIN [Concomitant]
     Active Substance: PRAVASTATIN\PRAVASTATIN SODIUM
     Dosage: 40 UNK, UNK
     Route: 048
  18. HYDROCODONE [Suspect]
     Active Substance: HYDROCODONE
     Indication: MUSCULOSKELETAL PAIN
     Route: 065
  19. AZITHROMYCIN [Concomitant]
     Active Substance: AZITHROMYCIN ANHYDROUS
  20. NITROGLYCERIN. [Concomitant]
     Active Substance: NITROGLYCERIN
     Route: 060
  21. DALIRESP [Concomitant]
     Active Substance: ROFLUMILAST
     Dosage: 500 UNK, UNK
     Route: 048
  22. SYMBICORT [Concomitant]
     Active Substance: BUDESONIDE\FORMOTEROL FUMARATE DIHYDRATE
  23. DIGOXIN. [Concomitant]
     Active Substance: DIGOXIN
     Dosage: 125 MCG, Q OTHER DAY
     Route: 048
  24. LANTUS [Concomitant]
     Active Substance: INSULIN GLARGINE
     Dosage: 34 U, QPM
     Route: 058
  25. METOLAZONE. [Concomitant]
     Active Substance: METOLAZONE
     Dosage: 2.5 UNK, UNK
  26. IPRATROPIUM/ALBUTEROL [Concomitant]
     Active Substance: ALBUTEROL\IPRATROPIUM
     Dosage: UNK UNK, Q6HRS
  27. ELIQUIS [Concomitant]
     Active Substance: APIXABAN
     Dosage: 5 MG, UNK
     Route: 048
  28. BACLOFEN. [Concomitant]
     Active Substance: BACLOFEN
  29. MULTIVITAMINS [Concomitant]
     Active Substance: VITAMINS
  30. SPIRONOLACTONE. [Concomitant]
     Active Substance: SPIRONOLACTONE
     Dosage: 100 UNK, UNK
     Route: 048
  31. WARFARIN [Concomitant]
     Active Substance: WARFARIN

REACTIONS (19)
  - Chronic kidney disease [Unknown]
  - Bronchitis chronic [Recovering/Resolving]
  - Depressed level of consciousness [Recovering/Resolving]
  - Fatigue [Recovering/Resolving]
  - Weight increased [Recovering/Resolving]
  - Orthopnoea [Recovering/Resolving]
  - Acute respiratory failure [Unknown]
  - Hyponatraemia [Recovering/Resolving]
  - Asthenia [Unknown]
  - Dyspnoea [Unknown]
  - Death [Fatal]
  - Overdose [Unknown]
  - Chronic obstructive pulmonary disease [Unknown]
  - Mental status changes [Unknown]
  - Cardiac failure congestive [Recovering/Resolving]
  - Musculoskeletal pain [Unknown]
  - Encephalopathy [Unknown]
  - Pneumonia aspiration [Unknown]
  - Rotator cuff syndrome [Unknown]

NARRATIVE: CASE EVENT DATE: 20151121
